FAERS Safety Report 7632747-8 (Version None)
Quarter: 2011Q3

REPORT INFORMATION
  Report Type: 
  Country: None (occurrence: None)
  Receive Date: 20110725
  Receipt Date: 20110114
  Transmission Date: 20111222
  Serious: Yes (Other)
  Sender: FDA-Public Use
  Company Number: US-BRISTOL-MYERS SQUIBB COMPANY-15456320

PATIENT
  Age: 85 Year
  Sex: Male

DRUGS (1)
  1. COUMADIN [Suspect]
     Indication: ARRHYTHMIA
     Dosage: DURATION:3 YEARS

REACTIONS (1)
  - INTERNATIONAL NORMALISED RATIO ABNORMAL [None]
